FAERS Safety Report 17895873 (Version 2)
Quarter: 2020Q2

REPORT INFORMATION
  Report Type: Spontaneous
  Country: GB (occurrence: GB)
  Receive Date: 20200615
  Receipt Date: 20200619
  Transmission Date: 20200714
  Serious: Yes (Hospitalization, Other)
  Sender: FDA-Public Use
  Company Number: GB-PFIZER INC-2020228834

PATIENT
  Age: 70 Year
  Sex: Female

DRUGS (3)
  1. ADCAL D3 [Concomitant]
     Active Substance: CALCIUM CARBONATE\CHOLECALCIFEROL
     Indication: SUPPLEMENTATION THERAPY
     Dosage: LONG-TERM
     Route: 048
  2. ZOLEDRONIC ACID [Suspect]
     Active Substance: ZOLEDRONIC ACID
     Indication: OSTEOPOROSIS
     Dosage: UNK(ANNUAL INFUSION)
     Route: 042
  3. SUCRALFATE. [Concomitant]
     Active Substance: SUCRALFATE
     Dosage: LONG-TERM

REACTIONS (1)
  - Hypercalcaemia [Recovered/Resolved]
